FAERS Safety Report 8485829-5 (Version None)
Quarter: 2012Q3

REPORT INFORMATION
  Report Type: 
  Country: None (occurrence: None)
  Receive Date: 20120703
  Receipt Date: 20120626
  Transmission Date: 20120928
  Serious: Yes (Other)
  Sender: FDA-Public Use
  Company Number: PHHY2012AU039353

PATIENT
  Sex: Male

DRUGS (1)
  1. AFINITOR [Suspect]
     Indication: RENAL CANCER
     Dosage: 10 MG, UNK
     Route: 048
     Dates: start: 20110705

REACTIONS (5)
  - NEOPLASM MALIGNANT [None]
  - NEOPLASM PROGRESSION [None]
  - NAUSEA [None]
  - FALL [None]
  - HIP FRACTURE [None]
